FAERS Safety Report 17571229 (Version 1)
Quarter: 2020Q1

REPORT INFORMATION
  Report Type: Spontaneous
  Country: CA (occurrence: CA)
  Receive Date: 20200323
  Receipt Date: 20200323
  Transmission Date: 20200409
  Serious: Yes (Other)
  Sender: FDA-Public Use
  Company Number: CA-PFIZER INC-2020091149

PATIENT
  Age: 84 Year
  Sex: Male

DRUGS (2)
  1. PLAQUENIL [Concomitant]
     Active Substance: HYDROXYCHLOROQUINE SULFATE
     Dosage: 400 MG, DAILY
     Dates: start: 20190129, end: 20190829
  2. METHOTREXATE SODIUM. [Suspect]
     Active Substance: METHOTREXATE SODIUM
     Dosage: 20 MG, WEEKLY
     Route: 065
     Dates: start: 20190129, end: 20190528

REACTIONS (3)
  - Hypoacusis [Unknown]
  - Abdominal discomfort [Unknown]
  - Nausea [Unknown]
